FAERS Safety Report 18579276 (Version 2)
Quarter: 2021Q1

REPORT INFORMATION
  Report Type: Report from Study
  Country: US (occurrence: US)
  Receive Date: 20201204
  Receipt Date: 20210301
  Transmission Date: 20210419
  Serious: Yes (Hospitalization)
  Sender: FDA-Public Use
  Company Number: US-EISAI MEDICAL RESEARCH-EC-2020-084718

PATIENT
  Age: 67 Year
  Sex: Female

DRUGS (3)
  1. KEYTRUDA [Concomitant]
     Active Substance: PEMBROLIZUMAB
  2. LENVIMA [Suspect]
     Active Substance: LENVATINIB
     Route: 048
     Dates: start: 20201207
  3. LENVIMA [Suspect]
     Active Substance: LENVATINIB
     Indication: ENDOMETRIAL CANCER
     Route: 048
     Dates: start: 20201124, end: 20201201

REACTIONS (10)
  - Gait inability [Unknown]
  - Ascites [Unknown]
  - Hypocalcaemia [Unknown]
  - Hypomagnesaemia [Unknown]
  - Constipation [Unknown]
  - Hypokalaemia [Unknown]
  - Pleural effusion [Unknown]
  - Muscular weakness [Unknown]
  - Oedema peripheral [Unknown]
  - Tremor [Unknown]

NARRATIVE: CASE EVENT DATE: 2020
